FAERS Safety Report 23127125 (Version 1)
Quarter: 2023Q4

REPORT INFORMATION
  Report Type: Report from Study
  Country: ES (occurrence: ES)
  Receive Date: 20231030
  Receipt Date: 20231030
  Transmission Date: 20240109
  Serious: Yes (Death, Hospitalization, Other)
  Sender: FDA-Public Use
  Company Number: None

PATIENT
  Age: 69 Year
  Sex: Female
  Weight: 55 kg

DRUGS (13)
  1. DOXORUBICIN [Suspect]
     Active Substance: DOXORUBICIN
     Indication: Diffuse large B-cell lymphoma
     Dosage: 50 MG/M2, CYCLIC DAY 1
     Route: 042
     Dates: start: 20180404, end: 20180404
  2. CYCLOPHOSPHAMIDE [Suspect]
     Active Substance: CYCLOPHOSPHAMIDE
     Indication: Diffuse large B-cell lymphoma
     Dosage: 750 MG/M2, DAY 1, 1 CYCLICAL, DOSAGE FORM: INJECTION
     Route: 042
     Dates: start: 20180404, end: 20180404
  3. PREDNISONE [Suspect]
     Active Substance: PREDNISONE
     Indication: Diffuse large B-cell lymphoma
     Dosage: 100 MG, CYCLIC DAYS 1-5
     Route: 048
     Dates: start: 20180404, end: 20180408
  4. VINCRISTINE [Suspect]
     Active Substance: VINCRISTINE
     Indication: Diffuse large B-cell lymphoma
     Dosage: 1.4 MG/M2, CYCLICAL
     Route: 042
     Dates: start: 20180404, end: 20180404
  5. RITUXIMAB [Suspect]
     Active Substance: RITUXIMAB
     Indication: Diffuse large B-cell lymphoma
     Dosage: 375 MG/M2, CYCLIC (DAY1)
     Route: 042
     Dates: start: 20180404, end: 20180404
  6. AVADOMIDE [Suspect]
     Active Substance: AVADOMIDE
     Indication: Diffuse large B-cell lymphoma
     Dosage: 2 MG, CYCLIC (DAYS 1-5 AND 8-12 FOR 10/21 DAYS)
     Route: 048
     Dates: start: 20180404, end: 20180408
  7. SULFAMETHOXAZOLE\TRIMETHOPRIM [Concomitant]
     Active Substance: SULFAMETHOXAZOLE\TRIMETHOPRIM
     Indication: Infection prophylaxis
     Dosage: UNK
     Route: 048
     Dates: start: 20180405
  8. ALLOPURINOL [Concomitant]
     Active Substance: ALLOPURINOL
     Indication: Prophylaxis
     Dosage: 300 MG, 1X/DAY
     Route: 048
     Dates: start: 20180405
  9. ONDANSETRON [Concomitant]
     Active Substance: ONDANSETRON
     Indication: Prophylaxis of nausea and vomiting
     Dosage: 24 MG, 3X/DAY
     Route: 042
     Dates: start: 20180404, end: 20180406
  10. ZOLPIDEM [Concomitant]
     Active Substance: ZOLPIDEM TARTRATE
     Indication: Prophylaxis
     Dosage: 10 MG, 1X/DAY
     Route: 048
     Dates: start: 20180323
  11. Actocortin [Concomitant]
     Indication: Erythema
     Dosage: 10 MG, TOTAL, UNK (ONCE)
     Route: 042
     Dates: start: 20180404, end: 20180404
  12. Actocortin [Concomitant]
     Indication: Prophylaxis of nausea and vomiting
     Dosage: UNK
     Route: 065
  13. NEULASTA [Concomitant]
     Active Substance: PEGFILGRASTIM
     Indication: Infection prophylaxis
     Dosage: UNK, AS PER PROTOCOL, UNK
     Route: 065
     Dates: start: 20180405

REACTIONS (5)
  - Respiratory failure [Fatal]
  - Neoplasm progression [Fatal]
  - Intestinal obstruction [Not Recovered/Not Resolved]
  - Product use in unapproved indication [Unknown]
  - Off label use [Unknown]

NARRATIVE: CASE EVENT DATE: 20180404
